FAERS Safety Report 15261877 (Version 1)
Quarter: 2018Q3

REPORT INFORMATION
  Report Type: Spontaneous
  Country: US (occurrence: US)
  Receive Date: 20180719
  Receipt Date: 20180719
  Transmission Date: 20181010
  Serious: Yes (Other)
  Sender: FDA-Public Use
  Company Number: None

PATIENT
  Age: 56 Year
  Sex: Female
  Weight: 82.55 kg

DRUGS (1)
  1. GADAVIST [Suspect]
     Active Substance: GADOBUTROL
     Route: 042

REACTIONS (4)
  - Erythema [None]
  - Pruritus [None]
  - Sneezing [None]
  - Hypersensitivity [None]

NARRATIVE: CASE EVENT DATE: 20180705
